FAERS Safety Report 8045449-3 (Version None)
Quarter: 2012Q1

REPORT INFORMATION
  Report Type: 
  Country: None (occurrence: None)
  Receive Date: 20120113
  Receipt Date: 20120104
  Transmission Date: 20120608
  Serious: Yes (Death, Life-Threatening, Hospitalization)
  Sender: FDA-Public Use
  Company Number: FR-BRISTOL-MYERS SQUIBB COMPANY-16330524

PATIENT
  Age: 87 Year
  Sex: Female

DRUGS (12)
  1. ZOCOR [Concomitant]
  2. NOROXIN [Suspect]
     Indication: URINARY TRACT INFECTION
     Route: 048
     Dates: start: 20111027
  3. CORDARONE [Concomitant]
  4. LOVENOX [Concomitant]
     Route: 058
  5. UN-ALFA [Concomitant]
     Dates: end: 20111028
  6. PRAVASTATIN [Concomitant]
     Dates: end: 20111028
  7. ARIXTRA [Suspect]
     Dosage: 1DF-7.5 MG/0.6ML
     Route: 058
     Dates: end: 20111028
  8. LEVOTHYROXINE SODIUM [Concomitant]
  9. KETOPROFEN [Suspect]
     Indication: PROCEDURAL PAIN
     Dosage: BIPROFENID LP
     Route: 048
     Dates: start: 20111021, end: 20111028
  10. PREVISCAN [Concomitant]
  11. NEXIUM [Concomitant]
  12. IRBESARTAN [Suspect]
     Indication: HYPERTENSION
     Dosage: FOR A LONG TIME
     Route: 048

REACTIONS (3)
  - HAEMATOMA [None]
  - SHOCK HAEMORRHAGIC [None]
  - RENAL FAILURE ACUTE [None]
